FAERS Safety Report 21677147 (Version 1)
Quarter: 2022Q4

REPORT INFORMATION
  Report Type: Spontaneous
  Country: CN (occurrence: CN)
  Receive Date: 20221203
  Receipt Date: 20221203
  Transmission Date: 20230113
  Serious: Yes (Death, Hospitalization, Other)
  Sender: FDA-Public Use
  Company Number: CN-MSNLABS-2022MSNLIT01475

PATIENT

DRUGS (3)
  1. CAPECITABINE [Suspect]
     Active Substance: CAPECITABINE
     Indication: Adenocarcinoma gastric
     Dosage: D1-14 FOR 3 CYCLES
     Route: 048
  2. OXALIPLATIN [Suspect]
     Active Substance: OXALIPLATIN
     Indication: Adenocarcinoma gastric
     Dosage: D1 FOR 3 CYCLES
     Route: 042
  3. TEGAFUR [Suspect]
     Active Substance: TEGAFUR
     Indication: Adenocarcinoma gastric
     Dosage: D1-14 FOR 3 CYCLES
     Route: 048

REACTIONS (1)
  - Acute promyelocytic leukaemia [Fatal]
